FAERS Safety Report 13637381 (Version 1)
Quarter: 2017Q2

REPORT INFORMATION
  Report Type: Spontaneous
  Country: US (occurrence: US)
  Receive Date: 20170608
  Receipt Date: 20170608
  Transmission Date: 20170830
  Serious: No
  Sender: FDA-Public Use
  Company Number: None

PATIENT
  Age: 38 Year
  Sex: Female

DRUGS (1)
  1. COSENTYX [Suspect]
     Active Substance: SECUKINUMAB
     Indication: MALAISE
     Dosage: 150MG/ML, 2 PENS EVERY 4 WEEKS SUB-Q
     Route: 058
     Dates: start: 20170328

REACTIONS (1)
  - Aphthous ulcer [None]

NARRATIVE: CASE EVENT DATE: 20170606
